FAERS Safety Report 15221978 (Version 4)
Quarter: 2018Q4

REPORT INFORMATION
  Report Type: Spontaneous
  Country: None (occurrence: TW)
  Receive Date: 20180731
  Receipt Date: 20181004
  Transmission Date: 20190204
  Serious: Yes (Hospitalization)
  Sender: FDA-Public Use
  Company Number: TW-ALLERGAN-1837650US

PATIENT
  Age: 40 Year
  Sex: Female

DRUGS (1)
  1. BELKYRA [Suspect]
     Active Substance: DEOXYCHOLIC ACID
     Indication: FAT TISSUE INCREASED
     Dosage: 2 VIALS (40 MG/4 ML), SINGLE
     Route: 058
     Dates: start: 20180723, end: 20180723

REACTIONS (7)
  - Urinary tract infection [Recovered/Resolved]
  - Swelling [Unknown]
  - Nerve injury [Unknown]
  - Injection site nodule [Recovering/Resolving]
  - Pyrexia [Recovered/Resolved]
  - Muscular weakness [Unknown]
  - Headache [Unknown]

NARRATIVE: CASE EVENT DATE: 20180723
